FAERS Safety Report 6186983-0 (Version None)
Quarter: 2009Q2

REPORT INFORMATION
  Report Type: 
  Country: None (occurrence: None)
  Receive Date: 20090512
  Receipt Date: 20090428
  Transmission Date: 20091009
  Serious: Yes (Other)
  Sender: FDA-Public Use
  Company Number: JP-BAYER-200911352BYL

PATIENT
  Age: 39 Year
  Sex: Male
  Weight: 76 kg

DRUGS (4)
  1. FLUDARA [Suspect]
     Indication: DIFFUSE LARGE B-CELL LYMPHOMA STAGE III
     Dosage: AS USED: 25 MG/M2  UNIT DOSE: 50 MG
     Route: 042
     Dates: start: 20081028, end: 20081101
  2. ALKERAN [Concomitant]
     Indication: DIFFUSE LARGE B-CELL LYMPHOMA STAGE III
     Dosage: AS USED: 70 MG/M2
     Route: 042
     Dates: start: 20081031, end: 20081101
  3. CONCENTRATED RED CELLS [Concomitant]
     Indication: PACKED RED BLOOD CELL TRANSFUSION
     Route: 042
     Dates: start: 20081106, end: 20081210
  4. PLATELETS [Concomitant]
     Indication: PLATELET TRANSFUSION
     Route: 042
     Dates: start: 20081105, end: 20081210

REACTIONS (1)
  - ACUTE GRAFT VERSUS HOST DISEASE [None]
